FAERS Safety Report 6896274-8 (Version None)
Quarter: 2010Q3

REPORT INFORMATION
  Report Type: 
  Country: None (occurrence: None)
  Receive Date: 20100802
  Receipt Date: 20100726
  Transmission Date: 20110219
  Serious: Yes (Hospitalization)
  Sender: FDA-Public Use
  Company Number: B0666944A

PATIENT
  Sex: Male

DRUGS (6)
  1. AUGMENTIN '125' [Suspect]
     Indication: TOOTHACHE
     Dosage: 1UNIT THREE TIMES PER DAY
     Route: 048
     Dates: start: 20100525, end: 20100526
  2. DOLIPRANE [Suspect]
     Indication: TOOTHACHE
     Dosage: 1000MG FOUR TIMES PER DAY
     Route: 048
     Dates: start: 20100525, end: 20100528
  3. BIPROFENID [Suspect]
     Indication: TOOTHACHE
     Dosage: 1UNIT TWICE PER DAY
     Route: 048
     Dates: start: 20100525, end: 20100526
  4. IXPRIM [Suspect]
     Indication: TOOTHACHE
     Dosage: 1UNIT FOUR TIMES PER DAY
     Route: 048
     Dates: start: 20100525, end: 20100526
  5. IBUPROFEN TABLETS [Suspect]
     Indication: TOOTHACHE
     Dosage: 1UNIT SINGLE DOSE
     Route: 048
     Dates: start: 20100525, end: 20100525
  6. TPN [Suspect]
     Indication: PRODUCT USED FOR UNKNOWN INDICATION
     Route: 065
     Dates: start: 20100525, end: 20100527

REACTIONS (10)
  - DERMATITIS BULLOUS [None]
  - EPIDERMAL NECROSIS [None]
  - HYPERTHERMIA [None]
  - LEUKOCYTOSIS [None]
  - OEDEMA PERIPHERAL [None]
  - RASH MACULO-PAPULAR [None]
  - RASH MORBILLIFORM [None]
  - RASH SCARLATINIFORM [None]
  - SKIN EXFOLIATION [None]
  - TOXIC SKIN ERUPTION [None]
